FAERS Safety Report 6667375-4 (Version None)
Quarter: 2010Q2

REPORT INFORMATION
  Report Type: 
  Country: None (occurrence: None)
  Receive Date: 20100405
  Receipt Date: 20100323
  Transmission Date: 20101027
  Serious: Yes (Hospitalization)
  Sender: FDA-Public Use
  Company Number: PHHY2010US19114

PATIENT
  Sex: Female
  Weight: 81.2 kg

DRUGS (2)
  1. ERL 080A ERL+TAB [Suspect]
     Indication: IMMUNOSUPPRESSION
     Dosage: 2000 MG/DAY
     Route: 048
     Dates: start: 20091002
  2. ERL 080A ERL+TAB [Suspect]
     Dosage: 500 MG, BID
     Route: 048

REACTIONS (3)
  - CYTOMEGALOVIRUS INFECTION [None]
  - DYSPNOEA [None]
  - PLEURAL EFFUSION [None]
